FAERS Safety Report 4676785-6 (Version None)
Quarter: 2005Q2

REPORT INFORMATION
  Report Type: 
  Country: None (occurrence: None)
  Receive Date: 20050527
  Receipt Date: 20050303
  Transmission Date: 20051028
  Serious: Yes (Hospitalization)
  Sender: FDA-Public Use
  Company Number: US-MERCK-0503USA00814

PATIENT
  Age: 54 Year
  Sex: Male
  Weight: 119 kg

DRUGS (4)
  1. VIOXX [Suspect]
     Indication: ARTHRITIS
     Route: 048
     Dates: start: 20000718, end: 20040930
  2. VIOXX [Suspect]
     Route: 048
  3. VIOXX [Suspect]
     Indication: OSTEOARTHRITIS
     Route: 048
     Dates: start: 20000718, end: 20040930
  4. VIOXX [Suspect]
     Route: 048

REACTIONS (41)
  - ANAL FISSURE [None]
  - ANXIETY [None]
  - AORTIC ANEURYSM [None]
  - AORTIC DILATATION [None]
  - AORTIC VALVE INCOMPETENCE [None]
  - ARRHYTHMIA [None]
  - BACK PAIN [None]
  - BENIGN PROSTATIC HYPERPLASIA [None]
  - CELLULITIS [None]
  - CHEST DISCOMFORT [None]
  - CHEST PAIN [None]
  - CHROMATURIA [None]
  - CLAUSTROPHOBIA [None]
  - CORONARY ARTERY OCCLUSION [None]
  - DIVERTICULUM [None]
  - DIZZINESS [None]
  - DYSPNOEA [None]
  - ECZEMA [None]
  - EXOSTOSIS [None]
  - FLANK PAIN [None]
  - HAEMORRHOIDS [None]
  - HEADACHE [None]
  - HYPERHIDROSIS [None]
  - HYPERTENSION [None]
  - HYPOAESTHESIA [None]
  - INFLUENZA [None]
  - LIPIDS INCREASED [None]
  - NAUSEA [None]
  - NEPHROLITHIASIS [None]
  - PANIC DISORDER [None]
  - PERIPHERAL ARTERY ANEURYSM [None]
  - PHARYNGOLARYNGEAL PAIN [None]
  - POLYP [None]
  - PYREXIA [None]
  - RENAL ARTERY STENOSIS [None]
  - RETROGRADE EJACULATION [None]
  - RIGHT VENTRICULAR SYSTOLIC PRESSURE INCREASED [None]
  - SCOLIOSIS [None]
  - TRICUSPID VALVE INCOMPETENCE [None]
  - UPPER RESPIRATORY TRACT INFECTION [None]
  - VENTRICULAR EXTRASYSTOLES [None]
